FAERS Safety Report 14963567 (Version 1)
Quarter: 2018Q2

REPORT INFORMATION
  Report Type: Report from Study
  Country: CA (occurrence: CA)
  Receive Date: 20180601
  Receipt Date: 20180601
  Transmission Date: 20180711
  Serious: Yes (Death, Hospitalization, Other)
  Sender: FDA-Public Use
  Company Number: CA-PFIZER INC-2018221007

PATIENT
  Age: 59 Year
  Sex: Male

DRUGS (39)
  1. DILAUDID [Concomitant]
     Active Substance: HYDROMORPHONE HYDROCHLORIDE
     Dosage: 4 MG, 1X/DAY
     Route: 048
     Dates: start: 20171024, end: 20171024
  2. VITAMIN D3 [Concomitant]
     Active Substance: CHOLECALCIFEROL
     Dosage: 1000 UNIT, ONCE DAILY
     Route: 048
     Dates: start: 20131205, end: 20171119
  3. LYRICA [Suspect]
     Active Substance: PREGABALIN
     Dosage: 50 MG, 2X/DAY
     Route: 048
     Dates: start: 20161212, end: 20171119
  4. LYRICA [Suspect]
     Active Substance: PREGABALIN
     Dosage: 150 MG, 1X/DAY
     Route: 048
     Dates: start: 20161212, end: 20171119
  5. LAX-A-DAY [Concomitant]
     Dosage: 17 G, 1X/DAY
     Route: 048
     Dates: start: 20170504, end: 20171124
  6. ENZALUTAMIDE [Suspect]
     Active Substance: ENZALUTAMIDE
     Indication: HORMONE-REFRACTORY PROSTATE CANCER
     Dosage: 160 MG, 1X/DAY
     Route: 048
     Dates: start: 20171017, end: 20171123
  7. ATIVAN [Suspect]
     Active Substance: LORAZEPAM
     Dosage: 0.5 MG, ONCE DAILY
     Route: 048
     Dates: start: 20171124, end: 20171125
  8. DILAUDID [Concomitant]
     Active Substance: HYDROMORPHONE HYDROCHLORIDE
     Dosage: 2 MG, 1X/DAY
     Route: 048
     Dates: start: 20171122, end: 20171122
  9. PANTOLOC /01263204/ [Concomitant]
     Active Substance: PANTOPRAZOLE SODIUM
     Route: 048
     Dates: start: 20160513, end: 20171124
  10. ATENOLOL. [Concomitant]
     Active Substance: ATENOLOL
     Dosage: 50 MG, 1X/DAY
     Route: 048
     Dates: start: 20170614, end: 20171119
  11. MEGESTROL [Concomitant]
     Active Substance: MEGESTROL
     Dosage: 40 MG, 2X/DAY
     Route: 048
     Dates: start: 20170810, end: 20171125
  12. LASIX [Concomitant]
     Active Substance: FUROSEMIDE
     Dosage: 20 MG, 1X/DAY
     Route: 042
     Dates: start: 20171123, end: 20171123
  13. ATEZOLIZUMAB. [Suspect]
     Active Substance: ATEZOLIZUMAB
     Indication: HORMONE-REFRACTORY PROSTATE CANCER
     Dosage: 1200 MG, ONCE EVERY 3 WEEKS
     Route: 042
     Dates: start: 20171017
  14. DILAUDID [Concomitant]
     Active Substance: HYDROMORPHONE HYDROCHLORIDE
     Dosage: 1 MG, 1X/DAY
     Route: 058
     Dates: start: 20171123, end: 20171123
  15. AMLODIPINE [Concomitant]
     Active Substance: AMLODIPINE BESYLATE
     Dosage: 10 MG, 1X/DAY
     Route: 048
     Dates: start: 20170613, end: 20171119
  16. OLMETEC [Concomitant]
     Active Substance: OLMESARTAN MEDOXOMIL
     Dosage: 20 MG, 1X/DAY
     Route: 048
     Dates: start: 20170616, end: 20171119
  17. ATIVAN [Suspect]
     Active Substance: LORAZEPAM
     Dosage: 1 MG, 1X/DAY
     Route: 048
     Dates: start: 20171016, end: 20171119
  18. ATIVAN [Suspect]
     Active Substance: LORAZEPAM
     Dosage: 1 MG, 1X/DAY
     Route: 048
     Dates: start: 20171122, end: 20171122
  19. LYRICA [Suspect]
     Active Substance: PREGABALIN
     Dosage: 75 MG, 1X/DAY
     Route: 048
     Dates: start: 20171120, end: 20171124
  20. SENOKOT [Concomitant]
     Active Substance: SENNOSIDES
     Dosage: 8.6 MG, ONCE DAILY
     Route: 048
     Dates: start: 20171016, end: 20171119
  21. METHADONE [Concomitant]
     Active Substance: METHADONE HYDROCHLORIDE
     Dosage: 5 MG, 2X/DAY
     Route: 048
     Dates: start: 20171016, end: 20171122
  22. METHADONE [Concomitant]
     Active Substance: METHADONE HYDROCHLORIDE
     Dosage: 2.5 MG, 2X/DAY
     Route: 048
     Dates: start: 20171016, end: 20171122
  23. COLACE [Concomitant]
     Active Substance: DOCUSATE SODIUM
     Dosage: 200 MG, 2X/DAY
     Route: 048
     Dates: start: 20160513, end: 20171119
  24. PROCHLORPERAZINE. [Concomitant]
     Active Substance: PROCHLORPERAZINE
     Dosage: 10 MG, 1X/DAY
     Route: 048
     Dates: start: 201705
  25. LUPRON [Concomitant]
     Active Substance: LEUPROLIDE ACETATE
     Dosage: 22.5 MG, OTHER (ONE IN 3 MONTHS)
     Route: 030
     Dates: start: 20150708
  26. ATIVAN [Suspect]
     Active Substance: LORAZEPAM
     Dosage: 2 MG, 1X/DAY
     Route: 048
     Dates: start: 20171016, end: 20171119
  27. HYDROMORPH CONTIN [Concomitant]
     Active Substance: HYDROMORPHONE
     Indication: PRODUCT USED FOR UNKNOWN INDICATION
     Dosage: 18 MG, 1X/DAY
     Route: 048
     Dates: start: 20171016, end: 20171125
  28. HYDROMORPH CONTIN [Concomitant]
     Active Substance: HYDROMORPHONE
     Dosage: 15 MG, 1X/DAY
     Route: 048
     Dates: start: 20171016, end: 20171125
  29. DILAUDID [Concomitant]
     Active Substance: HYDROMORPHONE HYDROCHLORIDE
     Dosage: 3 MG, 1X/DAY
     Route: 048
     Dates: start: 20171016, end: 20171120
  30. VENLAFAXINE [Concomitant]
     Active Substance: VENLAFAXINE HYDROCHLORIDE
     Dosage: 37.5 MG, 1X/DAY
     Route: 048
     Dates: start: 20170208, end: 20171125
  31. DENOSUMAB [Concomitant]
     Active Substance: DENOSUMAB
     Dosage: 120 MG, MONTHLY
     Route: 058
     Dates: start: 20160514
  32. CALCIUM CARBONATE. [Concomitant]
     Active Substance: CALCIUM CARBONATE
     Dosage: 500 MG, 2X/DAY
     Route: 048
     Dates: start: 20171017
  33. LASIX [Concomitant]
     Active Substance: FUROSEMIDE
     Dosage: 20 MG, 1X/DAY
     Route: 048
     Dates: start: 20171024
  34. LASIX [Concomitant]
     Active Substance: FUROSEMIDE
     Dosage: 20 MG, 2X/DAY
     Route: 042
     Dates: start: 20171124, end: 20171124
  35. DILAUDID [Concomitant]
     Active Substance: HYDROMORPHONE HYDROCHLORIDE
     Dosage: 1.5 MG, 1X/DAY
     Route: 058
     Dates: start: 20171123, end: 20171125
  36. METHADONE [Concomitant]
     Active Substance: METHADONE HYDROCHLORIDE
     Dosage: 5 MG, 3X/DAY
     Route: 047
     Dates: start: 20171123, end: 20171124
  37. HYDROCHLOROTHIAZIDE. [Concomitant]
     Active Substance: HYDROCHLOROTHIAZIDE
     Dosage: 12.5 MG, 1X/DAY
     Route: 048
     Dates: start: 201707, end: 20171119
  38. ACETAMINOPHEN. [Concomitant]
     Active Substance: ACETAMINOPHEN
     Dosage: 975 MG, 3X/DAY
     Route: 048
     Dates: start: 20161024, end: 20171119
  39. PREDNISONE. [Concomitant]
     Active Substance: PREDNISONE
     Dosage: 5 MG, 2X/DAY
     Route: 048
     Dates: start: 20171001, end: 20171124

REACTIONS (2)
  - Acute kidney injury [Fatal]
  - Delirium [Recovered/Resolved]

NARRATIVE: CASE EVENT DATE: 20171120
